FAERS Safety Report 8346219-9 (Version None)
Quarter: 2012Q2

REPORT INFORMATION
  Report Type: 
  Country: None (occurrence: None)
  Receive Date: 20120509
  Receipt Date: 20120502
  Transmission Date: 20120825
  Serious: Yes (Hospitalization, Other)
  Sender: FDA-Public Use
  Company Number: US-CELGENEUS-163-21880-12022605

PATIENT
  Sex: Male

DRUGS (6)
  1. REVLIMID [Suspect]
     Indication: MULTIPLE MYELOMA
     Dosage: 5 MILLIGRAM
     Route: 048
     Dates: start: 20120130, end: 20120101
  2. FELODIPINE [Concomitant]
     Route: 065
  3. NITROGLYCERIN [Concomitant]
     Route: 065
  4. EXTRA STRENGTH TYLENOL [Concomitant]
     Route: 065
  5. CALCIUM + VITAMIN D [Concomitant]
     Route: 065
  6. MULTI-VITAMINS [Concomitant]
     Route: 065

REACTIONS (3)
  - ANGIOEDEMA [None]
  - FALL [None]
  - GASTRIC ULCER [None]
